FAERS Safety Report 24010163 (Version 2)
Quarter: 2024Q3

REPORT INFORMATION
  Report Type: Report from Study
  Country: AE (occurrence: AE)
  Receive Date: 20240625
  Receipt Date: 20240710
  Transmission Date: 20241017
  Serious: Yes (Other)
  Sender: ROCHE
  Company Number: AE-ROCHE-1858475

PATIENT
  Age: 17 Year
  Sex: Male
  Weight: 72.0 kg

DRUGS (4)
  1. ISOTRETINOIN [Suspect]
     Active Substance: ISOTRETINOIN
     Indication: Acne
     Dosage: STARTED 30 MG FOR 4 MONTHS? FREQUENCY TEXT:DAILY
     Route: 048
     Dates: start: 201603
  2. ISOTRETINOIN [Suspect]
     Active Substance: ISOTRETINOIN
     Indication: Lung neoplasm malignant
     Dosage: 20 MG ONE MONTH? FREQUENCY TEXT:DAILY
     Route: 048
  3. ISOTRETINOIN [Suspect]
     Active Substance: ISOTRETINOIN
     Dosage: FOR 6TH MONTH? FREQUENCY TEXT:DAILY
     Route: 048
     Dates: end: 201610
  4. ALECENSA [Suspect]
     Active Substance: ALECTINIB HYDROCHLORIDE
     Indication: Lung neoplasm malignant
     Route: 065

REACTIONS (7)
  - Chronic gastritis [Unknown]
  - Enteritis [Unknown]
  - Lung neoplasm malignant [Recovering/Resolving]
  - Blood creatine phosphokinase abnormal [Recovering/Resolving]
  - Cough [Recovering/Resolving]
  - Blood uric acid decreased [Unknown]
  - Pain in extremity [Recovering/Resolving]

NARRATIVE: CASE EVENT DATE: 20161001
